FAERS Safety Report 18590744 (Version 1)
Quarter: 2020Q4

REPORT INFORMATION
  Report Type: Spontaneous
  Country: FR (occurrence: FR)
  Receive Date: 20201208
  Receipt Date: 20201208
  Transmission Date: 20210114
  Serious: Yes (Hospitalization, Other)
  Sender: FDA-Public Use
  Company Number: FR-MYLANLABS-2020M1099213

PATIENT
  Age: 20 Year
  Sex: Female
  Weight: 150 kg

DRUGS (4)
  1. CYAMEMAZINE [Suspect]
     Active Substance: CYAMEMAZINE
     Indication: PRODUCT USED FOR UNKNOWN INDICATION
     Dosage: 1.5 GRAM, TOTAL
     Route: 048
     Dates: start: 20201030, end: 20201030
  2. ALPRAZOLAM. [Suspect]
     Active Substance: ALPRAZOLAM
     Indication: PRODUCT USED FOR UNKNOWN INDICATION
     Dosage: 10 MILLIGRAM, TOTAL
     Route: 048
     Dates: start: 20201030, end: 20201030
  3. DOLIPRANE [Suspect]
     Active Substance: ACETAMINOPHEN
     Indication: POISONING DELIBERATE
     Dosage: 40 GRAM, TOTAL
     Route: 048
     Dates: start: 20201030, end: 20201030
  4. DAFALGAN CODEINE [Suspect]
     Active Substance: ACETAMINOPHEN\CODEINE PHOSPHATE
     Indication: POISONING DELIBERATE
     Dosage: 80 DOSAGE FORM, TOTAL
     Route: 048
     Dates: start: 20201030, end: 20201030

REACTIONS (8)
  - Miosis [Recovered/Resolved]
  - Vomiting [Recovered/Resolved]
  - Poisoning deliberate [Unknown]
  - Oxygen saturation decreased [Recovered/Resolved]
  - Hypersomnia [Recovered/Resolved]
  - Tachycardia [Recovered/Resolved]
  - Hepatocellular injury [Recovered/Resolved]
  - Hypotension [Recovered/Resolved]

NARRATIVE: CASE EVENT DATE: 20201030
